FAERS Safety Report 23515368 (Version 1)
Quarter: 2024Q1

REPORT INFORMATION
  Report Type: Spontaneous
  Country: US (occurrence: US)
  Receive Date: 20240213
  Receipt Date: 20240213
  Transmission Date: 20240409
  Serious: Yes (Other)
  Sender: FDA-Public Use
  Company Number: US-ALKEM LABORATORIES LIMITED-US-ALKEM-2024-02149

PATIENT
  Age: 59 Year
  Sex: Male

DRUGS (1)
  1. OLMESARTAN [Suspect]
     Active Substance: OLMESARTAN
     Indication: Hypertension
     Dosage: UNK
     Route: 065

REACTIONS (2)
  - Liver injury [Recovered/Resolved]
  - Sprue-like enteropathy [Recovered/Resolved]
